FAERS Safety Report 4438194-4 (Version None)
Quarter: 2004Q3

REPORT INFORMATION
  Report Type: 
  Country: None (occurrence: None)
  Receive Date: 20040831
  Receipt Date: 20040611
  Transmission Date: 20050211
  Serious: No
  Sender: FDA-Public Use
  Company Number: US-GLAXOSMITHKLINE-A0514330A

PATIENT
  Age: 54 Year
  Sex: Female

DRUGS (5)
  1. WELLBUTRIN XL [Suspect]
     Indication: ANXIETY
     Dosage: 150MG PER DAY
     Route: 048
     Dates: start: 20040608
  2. LEVOXYL [Concomitant]
  3. TENORMIN [Concomitant]
  4. LORAZEPAM [Concomitant]
  5. AMITRIPTYLINE HCL [Concomitant]

REACTIONS (3)
  - GASTRIC DISORDER [None]
  - NAUSEA [None]
  - PARAESTHESIA [None]
